FAERS Safety Report 8948011 (Version 1)
Quarter: 2012Q4

REPORT INFORMATION
  Report Type: Spontaneous
  Country: US (occurrence: None)
  Receive Date: 20121203
  Receipt Date: 20121203
  Transmission Date: 20130627
  Serious: Yes (Other)
  Sender: FDA-Public Use
  Company Number: None

PATIENT
  Sex: Male
  Weight: 73.48 kg

DRUGS (1)
  1. CLOPIDOGREL [Suspect]
     Route: 048
     Dates: start: 20120913

REACTIONS (1)
  - Drug intolerance [None]
